FAERS Safety Report 9687174 (Version 2)
Quarter: 2014Q2

REPORT INFORMATION
  Report Type: Report from Study
  Country: NL (occurrence: NL)
  Receive Date: 20131113
  Receipt Date: 20140516
  Transmission Date: 20141212
  Serious: Yes (Death, Hospitalization)
  Sender: FDA-Public Use
  Company Number: NL-ABBVIE-13P-114-1169005-00

PATIENT
  Sex: Male

DRUGS (12)
  1. LUCRIN [Suspect]
     Indication: PROSTATE CANCER
     Route: 058
     Dates: start: 20120911
  2. BETAHISTINE [Concomitant]
     Indication: MENIERE^S DISEASE
     Dosage: DAILY
     Route: 048
     Dates: start: 20120906, end: 20131030
  3. BICALUTAMIDE [Concomitant]
     Indication: PROSTATE CANCER
     Dosage: DAILY
     Route: 048
     Dates: start: 20120906, end: 20131030
  4. NIFEDIPINE [Concomitant]
     Indication: HYPERTENSION
     Dosage: DAILY
     Route: 048
     Dates: start: 20120906, end: 20131101
  5. METOPROLOL [Concomitant]
     Indication: HYPERTENSION
     Dosage: DAILY, INCREASED
     Route: 048
     Dates: start: 20120906, end: 20131030
  6. BUMETANIDE [Concomitant]
     Indication: PRODUCT USED FOR UNKNOWN INDICATION
     Route: 048
     Dates: end: 20131030
  7. SIMVASTATIN [Concomitant]
     Indication: PRODUCT USED FOR UNKNOWN INDICATION
     Dosage: PCH FC
     Route: 048
     Dates: end: 20131030
  8. SELOKEEN [Concomitant]
     Indication: PRODUCT USED FOR UNKNOWN INDICATION
     Route: 048
     Dates: end: 20131030
  9. PLAQUENIL [Concomitant]
     Indication: PRODUCT USED FOR UNKNOWN INDICATION
     Route: 048
     Dates: end: 20131030
  10. ETALPHA [Concomitant]
     Indication: PRODUCT USED FOR UNKNOWN INDICATION
     Route: 048
     Dates: end: 20131030
  11. CARBASALATE CALCIUM [Concomitant]
     Indication: PRODUCT USED FOR UNKNOWN INDICATION
     Dosage: POWDER
     Route: 048
     Dates: end: 20131030
  12. LOSEC [Concomitant]
     Indication: PRODUCT USED FOR UNKNOWN INDICATION
     Route: 048
     Dates: end: 20131030

REACTIONS (4)
  - Cardiac failure [Fatal]
  - Dyspnoea [Fatal]
  - Oedema [Fatal]
  - Renal failure chronic [Fatal]
